FAERS Safety Report 16140612 (Version 1)
Quarter: 2019Q2

REPORT INFORMATION
  Report Type: Report from Study
  Country: PL (occurrence: PL)
  Receive Date: 20190401
  Receipt Date: 20190401
  Transmission Date: 20190711
  Serious: Yes (Other)
  Sender: FDA-Public Use
  Company Number: PL-CHIESI USA, INC.-PL-2019CHI000127

PATIENT

DRUGS (3)
  1. CAFFEINE CITRATE. [Concomitant]
     Active Substance: CAFFEINE CITRATE
     Indication: PRODUCT USED FOR UNKNOWN INDICATION
     Dosage: UNK
     Dates: start: 20180904, end: 20181003
  2. CUROSURF [Suspect]
     Active Substance: PORACTANT ALFA
     Dosage: UNK, SINGLE
     Route: 007
     Dates: start: 20180904
  3. CUROSURF [Suspect]
     Active Substance: PORACTANT ALFA
     Indication: NEONATAL RESPIRATORY DISTRESS SYNDROME
     Dosage: 2.25 ML, SINGLE
     Route: 039
     Dates: start: 20180904

REACTIONS (3)
  - Product administration error [Recovered/Resolved]
  - Dependence on oxygen therapy [Recovered/Resolved]
  - Condition aggravated [Recovered/Resolved]

NARRATIVE: CASE EVENT DATE: 20180904
